FAERS Safety Report 5172161-0 (Version None)
Quarter: 2006Q4

REPORT INFORMATION
  Report Type: 
  Country: None (occurrence: None)
  Receive Date: 20061205
  Receipt Date: 20061124
  Transmission Date: 20070319
  Serious: Yes (Other)
  Sender: FDA-Public Use
  Company Number: 2006095542

PATIENT

DRUGS (1)
  1. LIPITOR [Suspect]
     Dosage: (20 MG)

REACTIONS (6)
  - GROIN PAIN [None]
  - HIP SURGERY [None]
  - MYALGIA [None]
  - MYOPATHY [None]
  - PAIN IN EXTREMITY [None]
  - SPINAL COLUMN STENOSIS [None]
